FAERS Safety Report 5856376-1 (Version None)
Quarter: 2008Q3

REPORT INFORMATION
  Report Type: 
  Country: None (occurrence: None)
  Receive Date: 20080825
  Receipt Date: 20080815
  Transmission Date: 20090109
  Serious: Yes (Death, Hospitalization, Other)
  Sender: FDA-Public Use
  Company Number: US-JNJFOC-20070300148

PATIENT
  Sex: Male

DRUGS (1)
  1. REMICADE [Suspect]
     Indication: CROHN'S DISEASE
     Dosage: INTERMITTENT THERAPY FOR 2.5 YEARS, 10 TO 20 INFUSIONS ADMINISTERED ON UNKNOWN DATES
     Route: 042

REACTIONS (3)
  - HODGKIN'S DISEASE [None]
  - SEPSIS [None]
  - SHOCK [None]
